FAERS Safety Report 5112577-1 (Version None)
Quarter: 2006Q3

REPORT INFORMATION
  Report Type: 
  Country: None (occurrence: None)
  Receive Date: 20060922
  Receipt Date: 20060918
  Transmission Date: 20061208
  Serious: Yes (Hospitalization)
  Sender: FDA-Public Use
  Company Number: FR-AVENTIS-200619676GDDC

PATIENT
  Age: 86 Year
  Sex: Male

DRUGS (7)
  1. DAONIL [Suspect]
     Route: 048
     Dates: start: 19960615
  2. BEFIZAL [Suspect]
     Dates: start: 20010615
  3. APROVEL [Concomitant]
  4. GLUCOR [Concomitant]
     Dates: start: 20010615
  5. ESBERIVEN FORT [Concomitant]
  6. TANAKAN [Concomitant]
  7. PROSCAR [Concomitant]

REACTIONS (12)
  - BLOOD LACTATE DEHYDROGENASE INCREASED [None]
  - C-REACTIVE PROTEIN INCREASED [None]
  - COUGH [None]
  - DIARRHOEA [None]
  - EOSINOPHILIA [None]
  - FORCED EXPIRATORY VOLUME DECREASED [None]
  - HYPERPROTEINAEMIA [None]
  - PULMONARY FIBROSIS [None]
  - RALES [None]
  - TOTAL LUNG CAPACITY DECREASED [None]
  - VITAL CAPACITY DECREASED [None]
  - WEIGHT DECREASED [None]
